FAERS Safety Report 9819645 (Version 1)
Quarter: 2014Q1

REPORT INFORMATION
  Report Type: Spontaneous
  Country: US (occurrence: None)
  Receive Date: 20140113
  Receipt Date: 20140113
  Transmission Date: 20141002
  Serious: Yes (Death, Hospitalization)
  Sender: FDA-Public Use
  Company Number: 152383

PATIENT
  Sex: Male

DRUGS (2)
  1. CYTARABINE [Suspect]
     Indication: ACUTE MYELOID LEUKAEMIA
     Dosage: (100MG/M2, DAYS 1-7
     Route: 042
     Dates: start: 20110519, end: 20110526
  2. DAUNORUBICIN [Concomitant]

REACTIONS (3)
  - Cerebrovascular accident [None]
  - Sepsis [None]
  - Multi-organ failure [None]
